FAERS Safety Report 10046791 (Version 1)
Quarter: 2014Q1

REPORT INFORMATION
  Report Type: Spontaneous
  Country: RU (occurrence: RU)
  Receive Date: 20140331
  Receipt Date: 20140331
  Transmission Date: 20141002
  Serious: Yes (Hospitalization)
  Sender: FDA-Public Use
  Company Number: RU-BAYER-2014-044602

PATIENT
  Age: 32 Year
  Sex: Female

DRUGS (1)
  1. YARINA [Suspect]
     Indication: CONTRACEPTION
     Route: 048

REACTIONS (4)
  - Food poisoning [None]
  - Diarrhoea [None]
  - Vomiting [None]
  - Drug dose omission [None]
